FAERS Safety Report 13869301 (Version 1)
Quarter: 2017Q3

REPORT INFORMATION
  Report Type: Spontaneous
  Country: SE (occurrence: SE)
  Receive Date: 20170815
  Receipt Date: 20170815
  Transmission Date: 20171127
  Serious: Yes (Life-Threatening)
  Sender: FDA-Public Use
  Company Number: SE-MYLANLABS-M-EU-2017030680

PATIENT

DRUGS (1)
  1. GLYTRIN 0.4 MG/DOS [Suspect]
     Active Substance: NITROGLYCERIN
     Dosage: 2 SPRAYS
     Route: 060

REACTIONS (2)
  - Drug ineffective [Recovered/Resolved]
  - Product quality issue [Recovered/Resolved]

NARRATIVE: CASE EVENT DATE: 20170329
